FAERS Safety Report 25431012 (Version 2)
Quarter: 2025Q3

REPORT INFORMATION
  Report Type: Report from Study
  Country: CA (occurrence: CA)
  Receive Date: 20250612
  Receipt Date: 20250923
  Transmission Date: 20251020
  Serious: No
  Sender: ABBVIE
  Company Number: CA-ABBVIE-6317201

PATIENT
  Age: 70 Year
  Sex: Male

DRUGS (5)
  1. SKYRIZI [Suspect]
     Active Substance: RISANKIZUMAB-RZAA
     Indication: Crohn^s disease
     Route: 058
  2. PREDNISONE [Suspect]
     Active Substance: PREDNISONE
     Indication: Product used for unknown indication
     Dosage: 5 TABLETS ONE DAY, 4 TABLETS THE NEXT
     Route: 048
  3. PREDNISONE [Suspect]
     Active Substance: PREDNISONE
     Indication: Product used for unknown indication
     Dosage: 5 TABLETS ONE DAY, 4 TABLETS THE NEXT
     Route: 048
  4. PREDNISONE [Suspect]
     Active Substance: PREDNISONE
     Indication: Product used for unknown indication
     Route: 048
  5. PREDNISONE [Suspect]
     Active Substance: PREDNISONE
     Indication: Product used for unknown indication
     Dosage: 3 TABLETS
     Route: 048

REACTIONS (8)
  - Abdominal distension [Not Recovered/Not Resolved]
  - Intestinal lipomatosis [Unknown]
  - Gastrointestinal mucosal disorder [Unknown]
  - Inflammatory bowel disease [Unknown]
  - Gastrointestinal motility disorder [Unknown]
  - Abdominal pain [Recovering/Resolving]
  - Bowel movement irregularity [Unknown]
  - Gastrointestinal scarring [Unknown]

NARRATIVE: CASE EVENT DATE: 20250521
